FAERS Safety Report 5333370-0 (Version None)
Quarter: 2007Q2

REPORT INFORMATION
  Report Type: 
  Country: None (occurrence: None)
  Receive Date: 20070307
  Receipt Date: 20060327
  Transmission Date: 20071010
  Serious: Yes (Other)
  Sender: FDA-Public Use
  Company Number: 2006043088

PATIENT
  Sex: Female
  Weight: 88.4514 kg

DRUGS (6)
  1. NIFEDIPINE [Suspect]
     Indication: HYPERTENSION
     Dosage: 40 MG (40 MG, 1 IN 1 D), ORAL
     Route: 048
  2. TOPROL-XL [Concomitant]
  3. FUROSEMIDE [Concomitant]
  4. ASPIRIN [Concomitant]
  5. ZOCOR [Concomitant]
  6. ALLERGY MEDICATION (ALLERGY MEDICATION) [Concomitant]

REACTIONS (4)
  - BLOOD PRESSURE INADEQUATELY CONTROLLED [None]
  - BODY HEIGHT DECREASED [None]
  - CONSTIPATION [None]
  - DYSPNOEA [None]
